FAERS Safety Report 16075779 (Version 2)
Quarter: 2019Q2

REPORT INFORMATION
  Report Type: Spontaneous
  Country: US (occurrence: US)
  Receive Date: 20190315
  Receipt Date: 20190529
  Transmission Date: 20190711
  Serious: No
  Sender: FDA-Public Use
  Company Number: PHEH2019US010369

PATIENT
  Sex: Female

DRUGS (1)
  1. GLATOPA [Suspect]
     Active Substance: GLATIRAMER ACETATE
     Indication: MULTIPLE SCLEROSIS
     Dosage: 40 MG, QW3 (3 TIMES WEEKLY AT LEAST 48 HOURS BETWEEN INJECTIONS)
     Route: 058
     Dates: start: 20181207

REACTIONS (6)
  - Asthenia [Unknown]
  - Abdominal pain [Unknown]
  - Injection site pain [Unknown]
  - Nodule [Unknown]
  - Chest discomfort [Unknown]
  - Drug ineffective [Unknown]
